FAERS Safety Report 16860214 (Version 1)
Quarter: 2019Q3

REPORT INFORMATION
  Report Type: Spontaneous
  Country: US (occurrence: US)
  Receive Date: 20190927
  Receipt Date: 20190927
  Transmission Date: 20191005
  Serious: No
  Sender: FDA-Public Use
  Company Number: US-PFIZER INC-2019413349

PATIENT
  Age: 47 Year
  Sex: Male

DRUGS (1)
  1. XELJANZ XR [Suspect]
     Active Substance: TOFACITINIB CITRATE
     Indication: PSORIATIC ARTHROPATHY
     Dosage: 11 MG, DAILY
     Route: 048
     Dates: start: 20190821

REACTIONS (6)
  - Fatigue [Unknown]
  - Influenza like illness [Unknown]
  - Headache [Recovering/Resolving]
  - Nasal congestion [Unknown]
  - Insomnia [Unknown]
  - Malaise [Unknown]
